FAERS Safety Report 5173425-7 (Version None)
Quarter: 2006Q4

REPORT INFORMATION
  Report Type: 
  Country: None (occurrence: None)
  Receive Date: 20061207
  Receipt Date: 20061207
  Transmission Date: 20070319
  Serious: Yes (Other)
  Sender: FDA-Public Use
  Company Number: None

PATIENT
  Age: 4 Year
  Sex: Male
  Weight: 15.8759 kg

DRUGS (1)
  1. RITALIN [Suspect]
     Indication: ATTENTION DEFICIT/HYPERACTIVITY DISORDER
     Dosage: PILL    ONE A DAY   PO
     Route: 048
     Dates: start: 20000915, end: 20000918

REACTIONS (3)
  - ABNORMAL BEHAVIOUR [None]
  - FATIGUE [None]
  - PSYCHOMOTOR HYPERACTIVITY [None]
